FAERS Safety Report 24651183 (Version 2)
Quarter: 2024Q4

REPORT INFORMATION
  Report Type: Report from Study
  Country: US (occurrence: US)
  Receive Date: 20241122
  Receipt Date: 20241129
  Transmission Date: 20250115
  Serious: Yes (Other)
  Sender: UCB
  Company Number: US-UCBSA-2023047959

PATIENT
  Age: 8 Year
  Sex: Female
  Weight: 43 kg

DRUGS (2)
  1. FINTEPLA [Suspect]
     Active Substance: FENFLURAMINE
     Indication: Severe myoclonic epilepsy of infancy
     Dosage: 3 ML IN AM, 3.5 ML IN PM
     Dates: start: 201803
  2. FINTEPLA [Suspect]
     Active Substance: FENFLURAMINE
     Dosage: 0.3MG/KG/DAY
     Dates: start: 20201118

REACTIONS (3)
  - Tricuspid valve incompetence [Not Recovered/Not Resolved]
  - Weight decreased [Unknown]
  - Wrong technique in product usage process [Unknown]

NARRATIVE: CASE EVENT DATE: 20180301
